FAERS Safety Report 23795864 (Version 1)
Quarter: 2024Q2

REPORT INFORMATION
  Report Type: Spontaneous
  Country: RU (occurrence: None)
  Receive Date: 20240429
  Receipt Date: 20240429
  Transmission Date: 20240716
  Serious: Yes (Other)
  Sender: FDA-Public Use
  Company Number: RU-ROCHE-3549737

PATIENT
  Age: 71 Year
  Sex: Male

DRUGS (3)
  1. ATEZOLIZUMAB [Suspect]
     Active Substance: ATEZOLIZUMAB
     Indication: Small cell lung cancer
     Route: 065
     Dates: start: 20230903, end: 20240407
  2. CARBOPLATIN [Suspect]
     Active Substance: CARBOPLATIN
     Indication: Small cell lung cancer
     Route: 065
     Dates: start: 20230529, end: 20230822
  3. ETOPOSIDE [Suspect]
     Active Substance: ETOPOSIDE
     Indication: Small cell lung cancer
     Route: 065
     Dates: start: 20230529, end: 20230822

REACTIONS (6)
  - Neutropenia [Unknown]
  - Arteriosclerosis coronary artery [Unknown]
  - Arteriosclerosis [Unknown]
  - Pancreatic steatosis [Unknown]
  - Lumbar vertebral fracture [Unknown]
  - Abdominal hernia [Unknown]
